FAERS Safety Report 19083693 (Version 1)
Quarter: 2021Q2

REPORT INFORMATION
  Report Type: Spontaneous
  Country: US (occurrence: US)
  Receive Date: 20210401
  Receipt Date: 20210401
  Transmission Date: 20210717
  Serious: No
  Sender: FDA-Public Use
  Company Number: US-TEVA-2021-US-1896322

PATIENT
  Age: 13 Year
  Sex: Female
  Weight: 48.08 kg

DRUGS (1)
  1. AJOVY [Suspect]
     Active Substance: FREMANEZUMAB-VFRM
     Indication: MIGRAINE
     Route: 065
     Dates: start: 20210312

REACTIONS (6)
  - Constipation [Not Recovered/Not Resolved]
  - Dizziness [Unknown]
  - Malaise [Unknown]
  - Migraine [Not Recovered/Not Resolved]
  - Social problem [Unknown]
  - Vomiting [Unknown]
